FAERS Safety Report 25494985 (Version 1)
Quarter: 2025Q2

REPORT INFORMATION
  Report Type: Spontaneous
  Country: US (occurrence: US)
  Receive Date: 20250630
  Receipt Date: 20250630
  Transmission Date: 20250717
  Serious: No
  Sender: BIOMARIN
  Company Number: US-SA-2025SA174499

PATIENT
  Age: 1 Year
  Sex: Female

DRUGS (1)
  1. LARONIDASE [Suspect]
     Active Substance: LARONIDASE
     Indication: Mucopolysaccharidosis I
     Dosage: 2.9 TOTAL, QW
     Dates: start: 202403, end: 202506

REACTIONS (3)
  - Respiratory disorder [Unknown]
  - Rhinorrhoea [Unknown]
  - Productive cough [Unknown]

NARRATIVE: CASE EVENT DATE: 20250101
